FAERS Safety Report 21563927 (Version 2)
Quarter: 2022Q4

REPORT INFORMATION
  Report Type: Spontaneous
  Country: MX (occurrence: MX)
  Receive Date: 20221108
  Receipt Date: 20221110
  Transmission Date: 20230113
  Serious: Yes (Hospitalization, Other)
  Sender: FDA-Public Use
  Company Number: MX-NOVOPROD-957699

PATIENT
  Age: 84 Year
  Sex: Female
  Weight: 61.8 kg

DRUGS (8)
  1. VICTOZA [Suspect]
     Active Substance: LIRAGLUTIDE
     Indication: Diabetes mellitus
     Dosage: 0.6 MG, QD
     Dates: start: 20220901, end: 20220905
  2. INSULIN GLARGINE [Concomitant]
     Active Substance: INSULIN GLARGINE
     Indication: Product used for unknown indication
     Dosage: CURRENT DOSE: 15 IU A DAY BEFORE BREAKFAST
  3. METFORMIN [Concomitant]
     Active Substance: METFORMIN HYDROCHLORIDE
     Indication: Product used for unknown indication
     Dosage: 850 MG, BID
  4. ASPIRIN [Concomitant]
     Active Substance: ASPIRIN
     Indication: Product used for unknown indication
     Dosage: CURRENT DOSE: MONDAY WEDNESDAY AND FRIDAY
  5. DIOSMIN [DIOSMIN;HESPERIDIN] [Concomitant]
     Indication: Prophylaxis
     Dosage: 450 MG, QD (AT 3:00 PM)
  6. NORDIVER [Concomitant]
     Indication: Product used for unknown indication
     Dosage: 5 MG, QD (AT NIGHT)
  7. OMEPRAZOLE [Concomitant]
     Active Substance: OMEPRAZOLE
     Indication: Product used for unknown indication
     Dosage: CURRENT DOSE: 1 A DAY IN THE MORNING
  8. IRBESARTAN [Concomitant]
     Active Substance: IRBESARTAN
     Dosage: 300 MG, QD (IN THE MORNING)

REACTIONS (4)
  - Psychomotor skills impaired [Not Recovered/Not Resolved]
  - Vertigo [Not Recovered/Not Resolved]
  - Feeling cold [Unknown]
  - Fear [Unknown]

NARRATIVE: CASE EVENT DATE: 20220904
